FAERS Safety Report 19688931 (Version 1)
Quarter: 2021Q3

REPORT INFORMATION
  Report Type: Report from Study
  Country: None (occurrence: TW)
  Receive Date: 20210812
  Receipt Date: 20210812
  Transmission Date: 20211014
  Serious: Yes (Other)
  Sender: FDA-Public Use
  Company Number: TW-ABBVIE-21K-153-4030854-00

PATIENT
  Age: 46 Year
  Sex: Male
  Weight: 90 kg

DRUGS (7)
  1. TRAMTOR [Concomitant]
     Indication: CROHN^S DISEASE
     Route: 048
     Dates: start: 20210407, end: 20210428
  2. TRAMTOR [Concomitant]
     Route: 048
     Dates: start: 20210609
  3. TRAMTOR [Concomitant]
     Route: 048
     Dates: start: 20210428, end: 20210512
  4. PREDONINE [Concomitant]
     Active Substance: PREDNISOLONE
     Indication: CROHN^S DISEASE
     Route: 048
     Dates: start: 20210407, end: 20210428
  5. PREDONINE [Concomitant]
     Active Substance: PREDNISOLONE
     Route: 048
     Dates: start: 20210512
  6. PREDONINE [Concomitant]
     Active Substance: PREDNISOLONE
     Route: 048
     Dates: start: 20210428, end: 20210512
  7. HUMIRA [Suspect]
     Active Substance: ADALIMUMAB
     Indication: CROHN^S DISEASE
     Route: 058
     Dates: start: 20210414, end: 20210721

REACTIONS (5)
  - Drug ineffective [Unknown]
  - Gastrointestinal wall thickening [Unknown]
  - Abdominal pain [Unknown]
  - Intestinal dilatation [Unknown]
  - Small intestinal obstruction [Unknown]

NARRATIVE: CASE EVENT DATE: 2021
